FAERS Safety Report 11206302 (Version 1)
Quarter: 2015Q2

REPORT INFORMATION
  Report Type: Spontaneous
  Country: US (occurrence: None)
  Receive Date: 20150619
  Receipt Date: 20150619
  Transmission Date: 20150821
  Serious: Yes (Hospitalization)
  Sender: FDA-Public Use
  Company Number: None

PATIENT
  Age: 69 Year
  Sex: Female
  Weight: 56.4 kg

DRUGS (6)
  1. LASIX [Concomitant]
     Active Substance: FUROSEMIDE
  2. SPIRONOLACTONE (ALDACTONE) [Concomitant]
  3. MULTIVITAMIN [Concomitant]
     Active Substance: VITAMINS
  4. HARVONI [Suspect]
     Active Substance: LEDIPASVIR\SOFOSBUVIR
     Indication: HEPATITIS C
     Route: 048
     Dates: start: 20150109
  5. LACTULOSE (CHRONULAC) [Concomitant]
  6. ESCITALOPRAM OXALATE (LEXAPRO) [Concomitant]

REACTIONS (9)
  - Hyponatraemia [None]
  - Hepatic hydrothorax [None]
  - Hypophagia [None]
  - Pleural effusion [None]
  - Acute kidney injury [None]
  - Pneumothorax [None]
  - Procedural complication [None]
  - Hepatorenal syndrome [None]
  - Dehydration [None]

NARRATIVE: CASE EVENT DATE: 20150531
